FAERS Safety Report 7807589-0 (Version None)
Quarter: 2011Q4

REPORT INFORMATION
  Report Type: 
  Country: None (occurrence: None)
  Receive Date: 20111011
  Receipt Date: 20111010
  Transmission Date: 20120403
  Serious: Yes (Death, Hospitalization)
  Sender: FDA-Public Use
  Company Number: AU-B.I. PHARMACEUTICALS,INC./RIDGEFIELD-2011-AU-01458AU

PATIENT
  Sex: Female
  Weight: 58 kg

DRUGS (4)
  1. ACIMAX [Concomitant]
     Dosage: 20 MG
  2. DORYX [Concomitant]
  3. PRADAXA [Suspect]
     Indication: ATRIAL FIBRILLATION
     Dosage: 300 MG
     Dates: start: 20110630
  4. NOTEN [Concomitant]

REACTIONS (2)
  - DEATH [None]
  - LOSS OF CONSCIOUSNESS [None]
